FAERS Safety Report 10187510 (Version 1)
Quarter: 2014Q2

REPORT INFORMATION
  Report Type: Spontaneous
  Country: US (occurrence: US)
  Receive Date: 20140522
  Receipt Date: 20140522
  Transmission Date: 20141212
  Serious: No
  Sender: FDA-Public Use
  Company Number: US-SANOFI-AVENTIS-2013SA075435

PATIENT
  Age: 12 Year
  Sex: Female

DRUGS (1)
  1. LANTUS [Suspect]
     Indication: TYPE 1 DIABETES MELLITUS
     Dosage: DOSE:30 UNIT(S)
     Route: 051
     Dates: start: 20110314

REACTIONS (4)
  - Abdominal discomfort [Recovered/Resolved]
  - Restlessness [Recovered/Resolved]
  - Injection site pain [Recovered/Resolved]
  - Blood glucose increased [Recovered/Resolved]
